FAERS Safety Report 10094640 (Version 1)
Quarter: 2014Q2

REPORT INFORMATION
  Report Type: Spontaneous
  Country: FR (occurrence: FR)
  Receive Date: 20140422
  Receipt Date: 20140422
  Transmission Date: 20141212
  Serious: Yes (Death, Hospitalization, Other)
  Sender: FDA-Public Use
  Company Number: FR-CELGENEUS-056-POMAL-14042139

PATIENT
  Age: 65 Year
  Sex: Male

DRUGS (2)
  1. IMNOVID [Suspect]
     Indication: PLASMA CELL MYELOMA
     Dosage: 3 MILLIGRAM
     Route: 048
     Dates: start: 201207
  2. DEXAMETHASONE [Concomitant]
     Indication: PLASMA CELL MYELOMA
     Dosage: 10 MILLIGRAM
     Route: 048
     Dates: start: 201207, end: 201402

REACTIONS (6)
  - Influenza [Fatal]
  - Acute respiratory distress syndrome [Fatal]
  - Aspergillus infection [Fatal]
  - Respiratory acidosis [Fatal]
  - Cardio-respiratory arrest [Fatal]
  - Circulatory collapse [Fatal]
